FAERS Safety Report 8001862-1 (Version None)
Quarter: 2011Q4

REPORT INFORMATION
  Report Type: 
  Country: None (occurrence: None)
  Receive Date: 20111222
  Receipt Date: 20111216
  Transmission Date: 20120403
  Serious: Yes (Hospitalization)
  Sender: FDA-Public Use
  Company Number: DE-US-EMD SERONO, INC.-7102232

PATIENT
  Age: 65 Year
  Sex: Female

DRUGS (8)
  1. OZOGAMICIN [Suspect]
     Indication: ACUTE MYELOID LEUKAEMIA
  2. PIPERACILLIN AND TAZOBACTAM [Concomitant]
     Indication: ACUTE MYELOID LEUKAEMIA
     Dosage: 3 X 4, 0.5 G
  3. IDARUBICIN HCL [Suspect]
     Indication: ACUTE MYELOID LEUKAEMIA
  4. GEMTUZUMAB [Suspect]
     Indication: ACUTE MYELOID LEUKAEMIA
  5. ATRACURIUM BESYLATE [Suspect]
     Indication: ACUTE MYELOID LEUKAEMIA
  6. LEVOFLOXACIN [Concomitant]
     Indication: ACUTE MYELOID LEUKAEMIA
  7. MITOXANTRONE [Suspect]
     Indication: ACUTE MYELOID LEUKAEMIA
  8. CYTARABINE [Suspect]
     Indication: ACUTE MYELOID LEUKAEMIA

REACTIONS (1)
  - ENTEROCOCCAL BACTERAEMIA [None]
